FAERS Safety Report 8607537-X (Version None)
Quarter: 2012Q3

REPORT INFORMATION
  Report Type: 
  Country: None (occurrence: None)
  Receive Date: 20120821
  Receipt Date: 20120814
  Transmission Date: 20120928
  Serious: Yes (Other)
  Sender: FDA-Public Use
  Company Number: US-JNJFOC-20120807788

PATIENT
  Age: 33 Year
  Sex: Female

DRUGS (3)
  1. RELPAX [Concomitant]
     Indication: MIGRAINE
     Dosage: AS NEEDED
     Route: 048
  2. NUCYNTA ER [Suspect]
     Indication: PELVIC PAIN
     Dosage: 50MG TWICE A DAY
     Route: 048
     Dates: start: 20120701, end: 20120701
  3. CYMBALTA [Concomitant]
     Indication: PRODUCT USED FOR UNKNOWN INDICATION
     Route: 048

REACTIONS (3)
  - CHEST DISCOMFORT [None]
  - ASTHMA [None]
  - MIGRAINE [None]
